FAERS Safety Report 6913507-X (Version None)
Quarter: 2010Q3

REPORT INFORMATION
  Report Type: 
  Country: None (occurrence: None)
  Receive Date: 20100809
  Receipt Date: 20100726
  Transmission Date: 20110219
  Serious: Yes (Other)
  Sender: FDA-Public Use
  Company Number: CA-ELI_LILLY_AND_COMPANY-CA201007006471

PATIENT
  Age: 17 Year
  Sex: Female
  Weight: 58.957 kg

DRUGS (3)
  1. CYMBALTA [Suspect]
     Indication: DEPRESSION
     Dosage: 60 MG, DAILY (1/D)
     Route: 048
     Dates: start: 20100323, end: 20100505
  2. YASMIN [Concomitant]
  3. MARIJUANA [Concomitant]
     Dosage: 1 D/F, DAILY (1/D)

REACTIONS (3)
  - ANXIETY [None]
  - SELF INJURIOUS BEHAVIOUR [None]
  - SUICIDE ATTEMPT [None]
